FAERS Safety Report 11805677 (Version 1)
Quarter: 2015Q4

REPORT INFORMATION
  Report Type: Spontaneous
  Country: US (occurrence: US)
  Receive Date: 20151207
  Receipt Date: 20151207
  Transmission Date: 20160305
  Serious: Yes (Death, Hospitalization, Other)
  Sender: FDA-Public Use
  Company Number: US-ACCORD-035966

PATIENT
  Age: 21 Year
  Sex: Female
  Weight: 59 kg

DRUGS (7)
  1. TOPIRAMATE. [Suspect]
     Active Substance: TOPIRAMATE
     Indication: PRODUCT USED FOR UNKNOWN INDICATION
  2. HYDROXYZINE [Concomitant]
     Active Substance: HYDROXYZINE\HYDROXYZINE HYDROCHLORIDE
     Route: 048
  3. PHENYTOIN. [Concomitant]
     Active Substance: PHENYTOIN
  4. CARBAMAZEPINE. [Interacting]
     Active Substance: CARBAMAZEPINE
     Route: 048
  5. IBUPROFEN. [Concomitant]
     Active Substance: IBUPROFEN
     Route: 048
  6. FLUOXETINE/FLUOXETINE HYDROCHLORIDE [Concomitant]
     Route: 048
  7. LAMOTRIGINE. [Concomitant]
     Active Substance: LAMOTRIGINE
     Dosage: AN UNKNOWN AMOUNT OF LAMOTRIGINE
     Route: 048

REACTIONS (7)
  - Suicidal ideation [Unknown]
  - Toxicity to various agents [Fatal]
  - Drug interaction [Fatal]
  - Generalised tonic-clonic seizure [Unknown]
  - Acute respiratory distress syndrome [Fatal]
  - Cardiac arrest [Fatal]
  - Overdose [Fatal]
